FAERS Safety Report 12834508 (Version 1)
Quarter: 2016Q4

REPORT INFORMATION
  Report Type: Spontaneous
  Country: FR (occurrence: FR)
  Receive Date: 20161010
  Receipt Date: 20161010
  Transmission Date: 20170207
  Serious: Yes (Hospitalization)
  Sender: FDA-Public Use
  Company Number: FR-PFIZER INC-2016463824

PATIENT
  Age: 66 Year
  Sex: Female

DRUGS (4)
  1. ULTIVA [Suspect]
     Active Substance: REMIFENTANIL HYDROCHLORIDE
     Dosage: 6, SINGLE
     Route: 042
     Dates: start: 20160923, end: 20160923
  2. ATRACURIUM BESILATE [Suspect]
     Active Substance: ATRACURIUM BESYLATE
     Indication: NEUROMUSCULAR BLOCKING THERAPY
     Dosage: 50 MG, SINGLE
     Route: 042
     Dates: start: 20160923, end: 20160923
  3. CEFAZOLINE PANPHARMA [Suspect]
     Active Substance: CEFAZOLIN SODIUM
     Indication: ANTIBIOTIC PROPHYLAXIS
     Dosage: 2 G, SINGLE
     Route: 042
     Dates: start: 20160923, end: 20160923
  4. PROPOFOL LIPURO [Suspect]
     Active Substance: PROPOFOL
     Dosage: 200 MG, SINGLE
     Route: 042
     Dates: start: 20160923, end: 20160923

REACTIONS (4)
  - Blood pressure decreased [Recovered/Resolved]
  - Rash papular [Recovered/Resolved]
  - Tachycardia [Recovered/Resolved]
  - Anaphylactic shock [Recovered/Resolved]

NARRATIVE: CASE EVENT DATE: 20160923
